FAERS Safety Report 18098392 (Version 2)
Quarter: 2020Q3

REPORT INFORMATION
  Report Type: Spontaneous
  Country: US (occurrence: US)
  Receive Date: 20200731
  Receipt Date: 20200804
  Transmission Date: 20201103
  Serious: No
  Sender: FDA-Public Use
  Company Number: US-PFIZER INC-2020290875

PATIENT
  Age: 52 Year
  Sex: Female
  Weight: 208 kg

DRUGS (1)
  1. IBRANCE [Suspect]
     Active Substance: PALBOCICLIB
     Indication: BREAST CANCER
     Dosage: 125 MG, DAILY (FOR 21 DAYS)
     Route: 048
     Dates: start: 20200416, end: 2020

REACTIONS (3)
  - White blood cell count decreased [Unknown]
  - Hypertension [Unknown]
  - Blood cholesterol increased [Unknown]
